FAERS Safety Report 11670938 (Version 1)
Quarter: 2015Q4

REPORT INFORMATION
  Report Type: Spontaneous
  Country: US (occurrence: US)
  Receive Date: 20151027
  Receipt Date: 20151027
  Transmission Date: 20160304
  Serious: No
  Sender: FDA-Public Use
  Company Number: US-ELI_LILLY_AND_COMPANY-US201005005102

PATIENT
  Sex: Female

DRUGS (1)
  1. FORTEO [Suspect]
     Active Substance: TERIPARATIDE
     Indication: OSTEOPOROSIS
     Dosage: 20 UG, UNK
     Dates: start: 20100501, end: 20100516

REACTIONS (24)
  - Pain [Recovering/Resolving]
  - Chills [Unknown]
  - Pain in extremity [Unknown]
  - Pyrexia [Unknown]
  - Depression [Unknown]
  - Nausea [Not Recovered/Not Resolved]
  - Feeling hot [Unknown]
  - Movement disorder [Unknown]
  - Abasia [Recovered/Resolved]
  - Influenza like illness [Unknown]
  - Nasal congestion [Unknown]
  - Hypersensitivity [Unknown]
  - Muscle spasms [Unknown]
  - Rhinorrhoea [Unknown]
  - Arthralgia [Unknown]
  - Asthenia [Unknown]
  - Dry mouth [Not Recovered/Not Resolved]
  - Oropharyngeal pain [Recovering/Resolving]
  - Back pain [Unknown]
  - Flushing [Unknown]
  - Decreased appetite [Not Recovered/Not Resolved]
  - Erythema [Unknown]
  - Dyspnoea [Unknown]
  - Dizziness [Recovered/Resolved]
